FAERS Safety Report 7298146-6 (Version None)
Quarter: 2011Q1

REPORT INFORMATION
  Report Type: 
  Country: None (occurrence: None)
  Receive Date: 20110214
  Receipt Date: 20110214
  Transmission Date: 20110831
  Serious: Yes (Other)
  Sender: FDA-Public Use
  Company Number: None

PATIENT
  Sex: Female
  Weight: 76.5 kg

DRUGS (2)
  1. OXACILLIN [Suspect]
     Indication: WOUND INFECTION STAPHYLOCOCCAL
     Dosage: OXACILLIN 2GM Q6H IV
     Route: 042
     Dates: start: 20110106, end: 20110121
  2. OXACILLIN [Suspect]

REACTIONS (1)
  - WHITE BLOOD CELL COUNT DECREASED [None]
